FAERS Safety Report 18536457 (Version 12)
Quarter: 2021Q1

REPORT INFORMATION
  Report Type: Report from Study
  Country: None (occurrence: ES)
  Receive Date: 20201124
  Receipt Date: 20210301
  Transmission Date: 20210419
  Serious: Yes (Hospitalization, Other)
  Sender: FDA-Public Use
  Company Number: ES-ABBVIE-20K-144-3656253-00

PATIENT
  Age: 71 Year
  Sex: Female

DRUGS (2)
  1. DUODOPA [Suspect]
     Active Substance: CARBIDOPA\LEVODOPA
     Dosage: 11 ML MORNING DOSE, 2ML/H CONTINUOUS DOSE AND 2ML EXTRA DOSE
     Route: 050
     Dates: start: 20201209
  2. DUODOPA [Suspect]
     Active Substance: CARBIDOPA\LEVODOPA
     Indication: PARKINSON^S DISEASE
     Route: 050
     Dates: start: 20201104, end: 20201113

REACTIONS (11)
  - Necrotising fasciitis [Recovering/Resolving]
  - Gastrointestinal motility disorder [Unknown]
  - Stoma site infection [Recovering/Resolving]
  - Mobility decreased [Unknown]
  - Somnolence [Unknown]
  - General physical health deterioration [Recovering/Resolving]
  - Malnutrition [Unknown]
  - Hypophagia [Recovered/Resolved]
  - Abdominal infection [Recovering/Resolving]
  - Dysphagia [Unknown]
  - Muscle atrophy [Unknown]

NARRATIVE: CASE EVENT DATE: 2020
